FAERS Safety Report 5026215-X (Version None)
Quarter: 2006Q2

REPORT INFORMATION
  Report Type: 
  Country: None (occurrence: None)
  Receive Date: 20060608
  Receipt Date: 20060526
  Transmission Date: 20061013
  Serious: Yes (Hospitalization)
  Sender: FDA-Public Use
  Company Number: 2006022656

PATIENT
  Age: 72 Year
  Sex: Female

DRUGS (4)
  1. GLIPIZIDE [Suspect]
     Indication: DIABETES MELLITUS
     Dosage: 400 MG (1 D),ORAL
     Route: 048
     Dates: end: 20051230
  2. ARICEPT [Suspect]
     Indication: PRESENILE DEMENTIA
     Dosage: 10 MG (10 MG, 1 IN 1 D),ORAL
     Route: 048
     Dates: start: 20050801, end: 20051228
  3. ACARBOSE [Suspect]
     Indication: DIABETES MELLITUS
     Dosage: 400 MG (1 D), ORAL
     Route: 048
     Dates: end: 20051230
  4. COTAREG (HYDROCHLOROTHIAZIDE, VALSARTAN) [Suspect]
     Indication: ESSENTIAL HYPERTENSION
     Dosage: 2 DOSAGE FORMS (1 D), UNKNOWN
     Route: 065
     Dates: end: 20051228

REACTIONS (13)
  - ALANINE AMINOTRANSFERASE INCREASED [None]
  - ASPARTATE AMINOTRANSFERASE INCREASED [None]
  - BLOOD BILIRUBIN INCREASED [None]
  - CONVULSION [None]
  - DISEASE PROGRESSION [None]
  - DISORIENTATION [None]
  - GAMMA-GLUTAMYLTRANSFERASE INCREASED [None]
  - HEPATIC FUNCTION ABNORMAL [None]
  - HYPERGLYCAEMIA [None]
  - HYPERTENSION [None]
  - HYPERTRIGLYCERIDAEMIA [None]
  - HYPONATRAEMIA [None]
  - LOSS OF CONSCIOUSNESS [None]
